FAERS Safety Report 7223907-9 (Version None)
Quarter: 2011Q1

REPORT INFORMATION
  Report Type: 
  Country: None (occurrence: None)
  Receive Date: 20110113
  Receipt Date: 20110104
  Transmission Date: 20110831
  Serious: Yes (Hospitalization, Other)
  Sender: FDA-Public Use
  Company Number: US-BIOGENIDEC-2011BI000498

PATIENT
  Age: 30 Year
  Sex: Female
  Weight: 99 kg

DRUGS (2)
  1. AVONEX [Suspect]
     Indication: MULTIPLE SCLEROSIS
     Route: 030
     Dates: start: 20010901
  2. PAIN MEDICATION [Concomitant]

REACTIONS (15)
  - ILL-DEFINED DISORDER [None]
  - GASTRIC ULCER [None]
  - INTERVERTEBRAL DISC PROTRUSION [None]
  - CONVULSION [None]
  - MOBILITY DECREASED [None]
  - BLINDNESS UNILATERAL [None]
  - ABASIA [None]
  - DYSARTHRIA [None]
  - MULTIPLE SCLEROSIS [None]
  - WEIGHT DECREASED [None]
  - SPINAL CORD DISORDER [None]
  - PAIN [None]
  - GAIT DISTURBANCE [None]
  - ARTHRALGIA [None]
  - EYE DISORDER [None]
